FAERS Safety Report 12006221 (Version 1)
Quarter: 2016Q1

REPORT INFORMATION
  Report Type: Spontaneous
  Country: US (occurrence: US)
  Receive Date: 20160204
  Receipt Date: 20160204
  Transmission Date: 20160526
  Serious: Yes (Other)
  Sender: FDA-Public Use
  Company Number: US-SA-2016SA020378

PATIENT
  Sex: Male
  Weight: 113.3 kg

DRUGS (3)
  1. ORENITRAM [Suspect]
     Active Substance: TREPROSTINIL
     Indication: PULMONARY ARTERIAL HYPERTENSION
     Dosage: STRENGTH: 0.25 MG
     Route: 048
     Dates: start: 20151001
  2. LASIX [Suspect]
     Active Substance: FUROSEMIDE
     Route: 065
  3. ADEMPAS [Concomitant]
     Active Substance: RIOCIGUAT

REACTIONS (7)
  - Abdominal pain upper [Unknown]
  - Cellulitis [Unknown]
  - Renal failure [Unknown]
  - Headache [Unknown]
  - Peripheral swelling [Unknown]
  - Swelling [Unknown]
  - Respiratory disorder [Unknown]
